FAERS Safety Report 23500784 (Version 3)
Quarter: 2024Q1

REPORT INFORMATION
  Report Type: Spontaneous
  Country: US (occurrence: US)
  Receive Date: 20240208
  Receipt Date: 20240329
  Transmission Date: 20240409
  Serious: Yes (Other)
  Sender: FDA-Public Use
  Company Number: US-009507513-2402USA001142

PATIENT
  Age: 64 Year
  Sex: Male

DRUGS (4)
  1. KEYTRUDA [Suspect]
     Active Substance: PEMBROLIZUMAB
     Indication: Head and neck cancer metastatic
     Dosage: 200 MG, Q3WKS
     Route: 042
     Dates: start: 20231109, end: 20240215
  2. KEYTRUDA [Suspect]
     Active Substance: PEMBROLIZUMAB
     Dosage: 200 MG, Q3WKS
     Route: 042
     Dates: start: 20240307
  3. INVESTIGATIONAL PRODUCT [Suspect]
     Active Substance: INVESTIGATIONAL PRODUCT
     Indication: Head and neck cancer metastatic
     Dosage: UNK
     Route: 065
  4. ERBITUX [Suspect]
     Active Substance: CETUXIMAB
     Indication: Head and neck cancer metastatic
     Dosage: 480 MILLIGRAM, FREQUENCY: WEEKLY
     Route: 042
     Dates: start: 20231109

REACTIONS (4)
  - Jejunostomy [Unknown]
  - Immune-mediated hypothyroidism [Recovered/Resolved]
  - Surgery [Unknown]
  - Procedural complication [Unknown]

NARRATIVE: CASE EVENT DATE: 20240103
